FAERS Safety Report 8438411-X (Version None)
Quarter: 2012Q2

REPORT INFORMATION
  Report Type: 
  Country: None (occurrence: None)
  Receive Date: 20120614
  Receipt Date: 20120601
  Transmission Date: 20120825
  Serious: Yes (Hospitalization)
  Sender: FDA-Public Use
  Company Number: US-ELI_LILLY_AND_COMPANY-US201205008872

PATIENT
  Sex: Female

DRUGS (2)
  1. FORTEO [Suspect]
     Indication: OSTEOPOROSIS
     Dosage: 20 UG, QD
     Dates: start: 20120301
  2. FORTEO [Suspect]
     Dosage: 20 UG, QD
     Dates: start: 20120521

REACTIONS (4)
  - WEIGHT INCREASED [None]
  - INTENTIONAL DRUG MISUSE [None]
  - CHRONIC OBSTRUCTIVE PULMONARY DISEASE [None]
  - VIRAL INFECTION [None]
